FAERS Safety Report 17283507 (Version 1)
Quarter: 2020Q1

REPORT INFORMATION
  Report Type: Spontaneous
  Country: US (occurrence: US)
  Receive Date: 20191230
  Receipt Date: 20191230
  Transmission Date: 20200409
  Serious: Yes (Hospitalization)
  Sender: FDA-Public Use
  Company Number: None

PATIENT
  Age: 56 Year
  Sex: Female

DRUGS (7)
  1. METOPROL TAR [Concomitant]
  2. CIPROLOXACIN [Concomitant]
     Active Substance: CIPROFLOXACIN
  3. SPIRONOLACT [Concomitant]
     Active Substance: SPIRONOLACTONE
  4. VENTOLIN HFA [Concomitant]
     Active Substance: ALBUTEROL SULFATE
  5. REPATHA [Suspect]
     Active Substance: EVOLOCUMAB
     Indication: TYPE V HYPERLIPIDAEMIA
     Dosage: ?          OTHER DOSE:1 PEN;OTHER FREQUENCY:Q2WKS;?
     Route: 058
     Dates: start: 20190808
  6. LISINOPRIL. [Concomitant]
     Active Substance: LISINOPRIL
  7. VENLAFAZINE [Concomitant]

REACTIONS (2)
  - Menopause [None]
  - Hysterectomy [None]

NARRATIVE: CASE EVENT DATE: 20191108
